FAERS Safety Report 12847185 (Version 3)
Quarter: 2016Q4

REPORT INFORMATION
  Report Type: Spontaneous
  Country: US (occurrence: US)
  Receive Date: 20161014
  Receipt Date: 20161110
  Transmission Date: 20170207
  Serious: Yes (Other)
  Sender: FDA-Public Use
  Company Number: US-009507513-1610USA003754

PATIENT
  Age: 48 Year
  Sex: Female

DRUGS (1)
  1. ZEPATIER [Suspect]
     Active Substance: ELBASVIR\GRAZOPREVIR
     Indication: HEPATITIS C
     Dosage: 1 TABLET (50/100MG); DAILY
     Route: 048
     Dates: start: 20160726

REACTIONS (4)
  - Bowel movement irregularity [Unknown]
  - Menstruation normal [Unknown]
  - Haematochezia [Unknown]
  - Spinal operation [Unknown]

NARRATIVE: CASE EVENT DATE: 201609
